FAERS Safety Report 23100476 (Version 1)
Quarter: 2023Q4

REPORT INFORMATION
  Report Type: Spontaneous
  Country: AU (occurrence: AU)
  Receive Date: 20231024
  Receipt Date: 20231024
  Transmission Date: 20240109
  Serious: Yes (Other)
  Sender: FDA-Public Use
  Company Number: AU-UCBSA-2022068939

PATIENT
  Sex: Female

DRUGS (3)
  1. BRIVIACT [Suspect]
     Active Substance: BRIVARACETAM
     Indication: Epileptic encephalopathy
     Dosage: 50 MILLIGRAM, UNK
  2. BRIVIACT [Suspect]
     Active Substance: BRIVARACETAM
     Indication: Off label use
     Dosage: 25 MILLIGRAM, UNK
  3. BRIVIACT [Suspect]
     Active Substance: BRIVARACETAM
     Dosage: 12.5 MILLIGRAM, UNK

REACTIONS (5)
  - Psychotic disorder [Recovered/Resolved]
  - Drug withdrawal convulsions [Unknown]
  - Wrong technique in product usage process [Unknown]
  - Intentional product use issue [Unknown]
  - Off label use [Unknown]
